FAERS Safety Report 5659089-4 (Version None)
Quarter: 2008Q1

REPORT INFORMATION
  Report Type: 
  Country: None (occurrence: None)
  Receive Date: 20080219
  Receipt Date: 20071107
  Transmission Date: 20080703
  Serious: No
  Sender: FDA-Public Use
  Company Number: WAES 0710USA03211

PATIENT
  Age: 64 Year
  Sex: Female
  Weight: 92.0802 kg

DRUGS (5)
  1. JANUVIA [Suspect]
     Indication: TYPE 2 DIABETES MELLITUS
     Dosage: 100 MG/DAILY/PO
     Route: 048
     Dates: start: 20070918, end: 20071002
  2. ASPIRIN [Concomitant]
  3. LOZOL [Concomitant]
  4. NORVASC [Concomitant]
  5. VASOTEC [Concomitant]

REACTIONS (1)
  - COUGH [None]
